FAERS Safety Report 6408356-5 (Version None)
Quarter: 2009Q4

REPORT INFORMATION
  Report Type: 
  Country: None (occurrence: None)
  Receive Date: 20091016
  Receipt Date: 20091003
  Transmission Date: 20100525
  Serious: Yes (Other)
  Sender: FDA-Public Use
  Company Number: AUR-APL-2009-00785

PATIENT
  Age: 26 Month
  Sex: Female

DRUGS (1)
  1. TOPIRAMATE [Suspect]
     Dosage: 6MG/KG/DAY

REACTIONS (1)
  - MYOCLONUS [None]
